FAERS Safety Report 8733620 (Version 7)
Quarter: 2016Q1

REPORT INFORMATION
  Report Type: Spontaneous
  Country: BR (occurrence: BR)
  Receive Date: 20120821
  Receipt Date: 20160111
  Transmission Date: 20160526
  Serious: Yes (Other)
  Sender: FDA-Public Use
  Company Number: BR-PFIZER INC-2012199667

PATIENT
  Age: 54 Year
  Sex: Female
  Weight: 65 kg

DRUGS (12)
  1. SUTENT [Suspect]
     Active Substance: SUNITINIB MALATE
     Dosage: 50 MG, CYCLE 4X1
     Dates: start: 20151209
  2. ATENOLOL. [Concomitant]
     Active Substance: ATENOLOL
     Indication: HYPERTENSION
     Dosage: UNK
  3. PANTOPRAZOLE [Concomitant]
     Active Substance: PANTOPRAZOLE SODIUM
     Dosage: 20 MG, ONE TABLET ONCE DAILY, OR TWO TABLETS AS NEEDED
  4. BUSCOPAN [Concomitant]
     Active Substance: BUTYLSCOPOLAMINE BROMIDE
     Dosage: 30 GTT, UNK
  5. DOMPERIDONE [Concomitant]
     Active Substance: DOMPERIDONE
  6. PURAN [Concomitant]
     Active Substance: LEVOTHYROXINE SODIUM
     Indication: THYROID DISORDER
     Dosage: UNK
  7. RANITIDINE [Concomitant]
     Active Substance: RANITIDINE\RANITIDINE HYDROCHLORIDE
  8. OMEPRAZOL [Concomitant]
     Active Substance: OMEPRAZOLE
     Dosage: 20 MG, 1X/DAY
  9. CAPTOPRIL. [Concomitant]
     Active Substance: CAPTOPRIL
     Dosage: 25 MG, 2X/DAY
  10. ALUMINIUM HYDROXIDE [Concomitant]
     Active Substance: ALUMINUM HYDROXIDE
  11. ZOLIBBS [Concomitant]
     Dosage: 1 APPLICATION, 1X/MONTH
  12. SUTENT [Suspect]
     Active Substance: SUNITINIB MALATE
     Indication: METASTATIC RENAL CELL CARCINOMA
     Dosage: 1 TABLET OF 50 MG, CYCLE 4 PER 1
     Route: 048
     Dates: start: 20120804, end: 201403

REACTIONS (27)
  - Gastrooesophageal reflux disease [Unknown]
  - Gastritis [Not Recovered/Not Resolved]
  - Swelling face [Not Recovered/Not Resolved]
  - Oedema peripheral [Not Recovered/Not Resolved]
  - Tooth disorder [Not Recovered/Not Resolved]
  - Impaired healing [Not Recovered/Not Resolved]
  - Abdominal discomfort [Unknown]
  - Mouth injury [Recovered/Resolved]
  - Abdominal pain upper [Not Recovered/Not Resolved]
  - Dyspepsia [Not Recovered/Not Resolved]
  - Malaise [Not Recovered/Not Resolved]
  - Gingival pain [Not Recovered/Not Resolved]
  - Tooth disorder [Not Recovered/Not Resolved]
  - Dysgeusia [Unknown]
  - Frequent bowel movements [Unknown]
  - Vomiting [Unknown]
  - Gastrointestinal pain [Unknown]
  - External ear disorder [Not Recovered/Not Resolved]
  - Peripheral swelling [Unknown]
  - Yellow skin [Unknown]
  - Diarrhoea [Not Recovered/Not Resolved]
  - Gingival bleeding [Not Recovered/Not Resolved]
  - Urinary tract infection [Unknown]
  - Hypertension [Not Recovered/Not Resolved]
  - Fatigue [Not Recovered/Not Resolved]
  - Swelling face [Not Recovered/Not Resolved]
  - Gingival pain [Not Recovered/Not Resolved]

NARRATIVE: CASE EVENT DATE: 2012
